FAERS Safety Report 5781011-0 (Version None)
Quarter: 2008Q2

REPORT INFORMATION
  Report Type: 
  Country: None (occurrence: None)
  Receive Date: 20080618
  Receipt Date: 20080606
  Transmission Date: 20081010
  Serious: Yes (Hospitalization, Other)
  Sender: FDA-Public Use
  Company Number: WAES 0805USA04673

PATIENT
  Age: 42 Year
  Sex: Female
  Weight: 49.8957 kg

DRUGS (4)
  1. CAP VORINOSTAT UNK [Suspect]
     Indication: ACUTE MYELOID LEUKAEMIA
     Dosage: 400 MG/DAILY/PO
     Route: 048
     Dates: start: 20080421, end: 20080504
  2. INJ DECITABINE UNK [Suspect]
     Indication: ACUTE MYELOID LEUKAEMIA
     Dosage: 20 MG/M[2]/DAILY/IV
     Route: 042
     Dates: start: 20080421, end: 20080425
  3. K-DUR [Concomitant]
  4. ASCORBIC AICD [Concomitant]

REACTIONS (8)
  - CHOLELITHIASIS [None]
  - FEBRILE NEUTROPENIA [None]
  - HYPERHIDROSIS [None]
  - HYPERURICAEMIA [None]
  - INFECTION [None]
  - MYELOFIBROSIS [None]
  - NAUSEA [None]
  - PROCTALGIA [None]
